FAERS Safety Report 26119341 (Version 1)
Quarter: 2025Q4

REPORT INFORMATION
  Report Type: Spontaneous
  Country: US (occurrence: US)
  Receive Date: 20251204
  Receipt Date: 20251204
  Transmission Date: 20260117
  Serious: No
  Sender: ACCORD
  Company Number: US-Accord-465616

PATIENT

DRUGS (1)
  1. LEVOTHYROXINE [Suspect]
     Active Substance: LEVOTHYROXINE
     Indication: Thyroid disorder
     Dosage: STRENGTH: 175 MCG

REACTIONS (2)
  - Product solubility abnormal [Unknown]
  - Fatigue [Unknown]
